FAERS Safety Report 4854879-X (Version None)
Quarter: 2005Q4

REPORT INFORMATION
  Report Type: 
  Country: None (occurrence: None)
  Receive Date: 20051213
  Receipt Date: 20051128
  Transmission Date: 20060501
  Serious: Yes (Hospitalization)
  Sender: FDA-Public Use
  Company Number: 2005-02477

PATIENT
  Age: 64 Year
  Sex: Male
  Weight: 68 kg

DRUGS (12)
  1. VELCADE [Suspect]
     Indication: MULTIPLE MYELOMA
     Dosage: 2.30 MG, INTRAVENOUS
     Route: 042
     Dates: start: 20050928, end: 20051009
  2. ALLOPURINOL [Concomitant]
  3. OXYCONTIN (OXYCODONE HYDROCHLORIDE) TABLET [Concomitant]
  4. ALOSENN (TARAXACUM OFFICINALE, ACHILLEA, SENNA LEAF, RUBIA ROOT TINCTU [Concomitant]
  5. FOSAMAX (ALENDROANE SODIUM) TALBET [Concomitant]
  6. PREDNISOLONE [Concomitant]
  7. BAKTAR (SULFAMETHOXAZOLE, TRIMETHOPRIM) TABLET [Concomitant]
  8. ATARAX-P (HYDROXYZINE HYDROCHLORIDE) TABLET [Concomitant]
  9. PARIET (RABEPRAZOLE SODIUM) TABLET [Concomitant]
  10. MUCOSTA (REBAMIPIDE) TABLET [Concomitant]
  11. PURSENNID (SENNA LEAF) TABLET [Concomitant]
  12. POLARAMINE [Concomitant]

REACTIONS (8)
  - DYSPNOEA [None]
  - HAEMATOCRIT DECREASED [None]
  - HAEMOGLOBIN DECREASED [None]
  - INFECTION [None]
  - LUNG DISORDER [None]
  - PLATELET COUNT DECREASED [None]
  - PNEUMONIA [None]
  - PYREXIA [None]
